FAERS Safety Report 8407418-0 (Version None)
Quarter: 2012Q2

REPORT INFORMATION
  Report Type: 
  Country: None (occurrence: None)
  Receive Date: 20120604
  Receipt Date: 20120524
  Transmission Date: 20120825
  Serious: Yes (Other)
  Sender: FDA-Public Use
  Company Number: DE-ASTRAZENECA-2012SE33685

PATIENT
  Sex: Male

DRUGS (2)
  1. ACE INHIBITOR [Concomitant]
  2. BRILINTA [Suspect]
     Route: 048
     Dates: start: 20120521

REACTIONS (3)
  - SOFT TISSUE NEOPLASM [None]
  - DRY MOUTH [None]
  - SALIVARY GLAND NEOPLASM [None]
